FAERS Safety Report 22230909 (Version 4)
Quarter: 2023Q4

REPORT INFORMATION
  Report Type: Spontaneous
  Country: US (occurrence: None)
  Receive Date: 20230420
  Receipt Date: 20231101
  Transmission Date: 20240110
  Serious: Yes (Hospitalization)
  Sender: FDA-Public Use
  Company Number: US-ROCHE-3331406

PATIENT
  Age: 32 Year
  Sex: Male

DRUGS (1)
  1. HEMLIBRA [Suspect]
     Active Substance: EMICIZUMAB-KXWH
     Indication: Factor VIII deficiency
     Dosage: FORM STRENGTH : 60MG/0.4ML
     Route: 058
     Dates: start: 202301

REACTIONS (2)
  - Ill-defined disorder [Unknown]
  - Epistaxis [Unknown]

NARRATIVE: CASE EVENT DATE: 20230401
